FAERS Safety Report 18634330 (Version 2)
Quarter: 2020Q4

REPORT INFORMATION
  Report Type: Report from Study
  Country: HK (occurrence: HK)
  Receive Date: 20201218
  Receipt Date: 20201229
  Transmission Date: 20210114
  Serious: Yes (Hospitalization, Other)
  Sender: FDA-Public Use
  Company Number: HK-PFIZER INC-2020421902

PATIENT
  Age: 67 Year
  Sex: Female
  Weight: 52.3 kg

DRUGS (14)
  1. AXITINIB [Suspect]
     Active Substance: AXITINIB
     Dosage: 3 MG, 2X/DAY
     Route: 048
     Dates: start: 20200626, end: 20200714
  2. AXITINIB [Suspect]
     Active Substance: AXITINIB
     Dosage: 3 MG, 2X/DAY
     Route: 048
     Dates: start: 20200811, end: 20200908
  3. FAMOTIDINE. [Concomitant]
     Active Substance: FAMOTIDINE
     Indication: EPIGASTRIC DISCOMFORT
     Dosage: UNK
     Route: 048
     Dates: start: 20201021, end: 20201025
  4. AXITINIB [Suspect]
     Active Substance: AXITINIB
     Indication: CERVIX CARCINOMA
     Dosage: 5 MG, 2X/DAY
     Route: 048
     Dates: start: 20200226, end: 20200421
  5. AXITINIB [Suspect]
     Active Substance: AXITINIB
     Dosage: 3 MG, 2X/DAY
     Route: 048
     Dates: start: 20200911, end: 20201028
  6. MAXOLON [Concomitant]
     Active Substance: METOCLOPRAMIDE HYDROCHLORIDE
     Indication: EPIGASTRIC DISCOMFORT
     Dosage: UNK
     Route: 048
     Dates: start: 20201021, end: 20201025
  7. AVELUMAB [Suspect]
     Active Substance: AVELUMAB
     Indication: CERVIX CARCINOMA
     Dosage: 10 MG/KG, CYCLIC (EVERY TWO WEEKS)
     Route: 042
     Dates: start: 20200226, end: 20201022
  8. ZOPICLONE [Concomitant]
     Active Substance: ZOPICLONE
     Indication: INSOMNIA
     Dosage: UNK
     Route: 048
     Dates: start: 20191118
  9. PARACETAMOL [Concomitant]
     Active Substance: ACETAMINOPHEN
     Indication: PREMEDICATION
     Dosage: UNK
     Route: 048
     Dates: start: 20200226
  10. DIPHENHYDRAMINE. [Concomitant]
     Active Substance: DIPHENHYDRAMINE
     Indication: PREMEDICATION
     Dosage: UNK
     Route: 042
     Dates: start: 20200226
  11. LACTULOSE. [Concomitant]
     Active Substance: LACTULOSE
     Indication: CONSTIPATION
     Dosage: UNK
     Route: 048
     Dates: start: 20191117
  12. AXITINIB [Suspect]
     Active Substance: AXITINIB
     Dosage: 5 MG, 2X/DAY
     Route: 048
     Dates: start: 20200429, end: 20200616
  13. CHLORPHENIRAMINE [CHLORPHENAMINE MALEATE] [Concomitant]
     Active Substance: CHLORPHENIRAMINE MALEATE
     Indication: RASH
     Dosage: UNK
     Route: 048
     Dates: start: 20200611
  14. MYLANTA [CALCIUM CARBONATE] [Concomitant]
     Active Substance: CALCIUM CARBONATE
     Indication: EPIGASTRIC DISCOMFORT
     Dosage: UNK
     Route: 048
     Dates: start: 20201021, end: 20201025

REACTIONS (3)
  - Deep vein thrombosis [Not Recovered/Not Resolved]
  - Wound infection [Recovered/Resolved]
  - Intestinal obstruction [Recovered/Resolved]

NARRATIVE: CASE EVENT DATE: 20201025
